FAERS Safety Report 10555331 (Version 11)
Quarter: 2020Q3

REPORT INFORMATION
  Report Type: Report from Study
  Country: JP (occurrence: JP)
  Receive Date: 20141030
  Receipt Date: 20200901
  Transmission Date: 20201102
  Serious: Yes (Life-Threatening, Other)
  Sender: FDA-Public Use
  Company Number: JP-INCYTE CORPORATION-2014IN002711

PATIENT

DRUGS (3)
  1. JAKAVI [Suspect]
     Active Substance: RUXOLITINIB
     Dosage: 10 MG, BID
     Route: 048
     Dates: start: 20140911, end: 20140916
  2. JAKAVI [Suspect]
     Active Substance: RUXOLITINIB
     Indication: PRIMARY MYELOFIBROSIS
     Dosage: 15 MG, BID
     Route: 048
     Dates: start: 20140902, end: 20140910
  3. JAKAVI [Suspect]
     Active Substance: RUXOLITINIB
     Dosage: 5 MG, BID
     Route: 048
     Dates: start: 20140927, end: 20141010

REACTIONS (9)
  - Peripheral swelling [Unknown]
  - Femur fracture [Recovering/Resolving]
  - White blood cell count decreased [Unknown]
  - Weight decreased [Unknown]
  - Serum ferritin increased [Not Recovered/Not Resolved]
  - Osteorrhagia [Recovering/Resolving]
  - Blood pressure decreased [Unknown]
  - Hepatic function abnormal [Recovering/Resolving]
  - Platelet count decreased [Recovered/Resolved]

NARRATIVE: CASE EVENT DATE: 20140908
